FAERS Safety Report 19785085 (Version 1)
Quarter: 2021Q3

REPORT INFORMATION
  Report Type: Spontaneous
  Country: US (occurrence: US)
  Receive Date: 20210903
  Receipt Date: 20210903
  Transmission Date: 20211014
  Serious: Yes (Death)
  Sender: FDA-Public Use
  Company Number: None

PATIENT
  Age: 45 Year
  Sex: Male
  Weight: 83 kg

DRUGS (1)
  1. TOCILIZUMAB. [Suspect]
     Active Substance: TOCILIZUMAB
     Indication: COVID-19
     Dosage: ?          OTHER FREQUENCY:ONE?TIME DOSE;?
     Route: 040
     Dates: start: 20210808, end: 20210808

REACTIONS (8)
  - Purulence [None]
  - Bacterial infection [None]
  - Pulseless electrical activity [None]
  - Respiratory tract procedural complication [None]
  - Sputum culture positive [None]
  - Organising pneumonia [None]
  - Cardiac arrest [None]
  - Pulmonary embolism [None]

NARRATIVE: CASE EVENT DATE: 20210903
